FAERS Safety Report 7577335-7 (Version None)
Quarter: 2011Q2

REPORT INFORMATION
  Report Type: 
  Country: None (occurrence: None)
  Receive Date: 20110628
  Receipt Date: 20110607
  Transmission Date: 20111010
  Serious: Yes (Other)
  Sender: FDA-Public Use
  Company Number: BR-BAYER-2011-049315

PATIENT
  Sex: Female
  Weight: 59 kg

DRUGS (3)
  1. YAZ [Suspect]
     Indication: OVARIAN CYST
     Dosage: 1 DF, QD
     Route: 048
     Dates: start: 20100901
  2. YAZ [Suspect]
     Indication: VAGINAL HAEMORRHAGE
     Dosage: 1 DF, QD
     Route: 048
  3. YAZ [Suspect]
     Indication: CONTRACEPTION

REACTIONS (6)
  - HEADACHE [None]
  - ABDOMINAL PAIN [None]
  - DYSMENORRHOEA [None]
  - SENSATION OF HEAVINESS [None]
  - ABDOMINAL DISTENSION [None]
  - UTERINE ATROPHY [None]
